FAERS Safety Report 5010123-4 (Version None)
Quarter: 2006Q2

REPORT INFORMATION
  Report Type: 
  Country: None (occurrence: None)
  Receive Date: 20060404
  Receipt Date: 20051205
  Transmission Date: 20061013
  Serious: No
  Sender: FDA-Public Use
  Company Number: US200512001318

PATIENT
  Sex: Female

DRUGS (1)
  1. CYMBALTA [Suspect]
     Dosage: 60 MG,
     Dates: start: 20051001, end: 20051101

REACTIONS (2)
  - DIZZINESS [None]
  - STOMACH DISCOMFORT [None]
